FAERS Safety Report 9882268 (Version 5)
Quarter: 2014Q1

REPORT INFORMATION
  Report Type: Report from Study
  Country: JP (occurrence: JP)
  Receive Date: 20140207
  Receipt Date: 20140325
  Transmission Date: 20141002
  Serious: Yes (Hospitalization)
  Sender: FDA-Public Use
  Company Number: JP-EXELIXIS-XL18414003970

PATIENT
  Age: 58 Year
  Sex: Male
  Weight: 50.4 kg

DRUGS (9)
  1. XL184 [Suspect]
     Indication: LUNG NEOPLASM MALIGNANT
     Dosage: 60 MG, QD
     Route: 048
     Dates: start: 20130213, end: 20130422
  2. XL184 [Suspect]
     Dosage: 40 MG, QD
     Route: 048
     Dates: start: 20130423, end: 20140127
  3. TEPRENONE [Concomitant]
  4. MOBIC [Concomitant]
  5. ZYLORIC [Concomitant]
  6. BESOFTEN [Concomitant]
  7. AZUNOL [Concomitant]
  8. LAC-B [Concomitant]
  9. SEPAMIT-R [Concomitant]

REACTIONS (1)
  - Bile duct stone [Recovered/Resolved]
